FAERS Safety Report 16944778 (Version 1)
Quarter: 2019Q4

REPORT INFORMATION
  Report Type: Report from Study
  Country: US (occurrence: US)
  Receive Date: 20191022
  Receipt Date: 20191022
  Transmission Date: 20200122
  Serious: Yes (Death, Other)
  Sender: FDA-Public Use
  Company Number: US-ASTELLAS-2019US041068

PATIENT
  Sex: Male

DRUGS (1)
  1. ISAVUCONAZOLE [Suspect]
     Active Substance: ISAVUCONAZOLE
     Indication: ASPERGILLUS INFECTION
     Dosage: 372 MG (TWO 186 MG CAPSULE), ONCE DAILY
     Route: 048
     Dates: start: 20190727, end: 20191010

REACTIONS (2)
  - Chronic obstructive pulmonary disease [Fatal]
  - Leukaemia [Fatal]
